FAERS Safety Report 21787270 (Version 1)
Quarter: 2022Q4

REPORT INFORMATION
  Report Type: Spontaneous
  Country: JP (occurrence: JP)
  Receive Date: 20221228
  Receipt Date: 20221228
  Transmission Date: 20230112
  Serious: Yes (Hospitalization, Other)
  Sender: FDA-Public Use
  Company Number: JP-MSD-M2022-30073

PATIENT
  Sex: Male
  Weight: 57 kg

DRUGS (4)
  1. KEYTRUDA [Suspect]
     Active Substance: PEMBROLIZUMAB
     Indication: Non-small cell lung cancer stage IV
     Dosage: 200 MILLIGRAM, Q3W
     Route: 041
     Dates: start: 20190910, end: 20220413
  2. ALIMTA [Suspect]
     Active Substance: PEMETREXED DISODIUM
     Indication: Non-small cell lung cancer stage IV
     Dosage: 800 MILLIGRAM, Q3W
     Route: 041
     Dates: start: 20190910, end: 20220413
  3. CARBOPLATIN [Concomitant]
     Active Substance: CARBOPLATIN
     Indication: Non-small cell lung cancer stage IV
     Dosage: UNK
     Route: 041
     Dates: start: 20190910, end: 20191113
  4. VITAMINS [Concomitant]
     Active Substance: VITAMINS
     Dosage: 1 GRAM, QD
     Route: 048
     Dates: start: 20190902, end: 20220518

REACTIONS (6)
  - Renal tubular injury [Unknown]
  - Renal arteriosclerosis [Unknown]
  - Tubulointerstitial nephritis [Recovering/Resolving]
  - Malignant neoplasm progression [Unknown]
  - Dizziness [Unknown]
  - Drug ineffective [Unknown]

NARRATIVE: CASE EVENT DATE: 20210101
